FAERS Safety Report 5860949-X (Version None)
Quarter: 2008Q3

REPORT INFORMATION
  Report Type: 
  Country: None (occurrence: None)
  Receive Date: 20080826
  Receipt Date: 20080814
  Transmission Date: 20090109
  Serious: Yes (Hospitalization)
  Sender: FDA-Public Use
  Company Number: 2008AL006352

PATIENT
  Age: 53 Year
  Sex: Female

DRUGS (1)
  1. DIGOXIN [Suspect]
     Indication: HEART RATE IRREGULAR
     Dosage: BID, PO
     Route: 048

REACTIONS (2)
  - CARDIAC FAILURE CONGESTIVE [None]
  - SKIN DISORDER [None]
